FAERS Safety Report 24206631 (Version 1)
Quarter: 2024Q3

REPORT INFORMATION
  Report Type: Spontaneous
  Country: ES (occurrence: ES)
  Receive Date: 20240813
  Receipt Date: 20240813
  Transmission Date: 20241016
  Serious: No
  Sender: JAZZ
  Company Number: ES-JAZZ PHARMACEUTICALS-2024-ES-001349

PATIENT
  Age: 65 Year
  Sex: Male
  Weight: 63.3 kg

DRUGS (3)
  1. VYXEOS [Suspect]
     Active Substance: CYTARABINE\DAUNORUBICIN
     Indication: Acute myeloid leukaemia
     Dosage: THREE CYCLES OF 81.4MG (44MG/M2 DAUNORUBICIN + 100MG/M2ARA-C) ON DAYS +1, +3, +5
     Route: 042
     Dates: start: 20230609, end: 20230616
  2. CEFTAZIDIME [Concomitant]
     Active Substance: CEFTAZIDIME
     Indication: Pyrexia
     Dosage: 2 GRAM EVERY 8 HOURS
     Route: 042
     Dates: start: 20230608
  3. LEVOFLOXACINO ACCORD [Concomitant]
     Indication: Pyrexia
     Dosage: 500 MILLIGRAM, QD
     Route: 048
     Dates: start: 20230608, end: 20230610

REACTIONS (2)
  - Rash [Recovered/Resolved]
  - Rash maculo-papular [Recovered/Resolved]

NARRATIVE: CASE EVENT DATE: 20230616
